FAERS Safety Report 14603616 (Version 1)
Quarter: 2018Q1

REPORT INFORMATION
  Report Type: Other
  Country: US (occurrence: US)
  Receive Date: 20180306
  Receipt Date: 20180306
  Transmission Date: 20180509
  Serious: No
  Sender: FDA-Public Use
  Company Number: US-INTERCEPT-PMOCA2017000640

PATIENT

DRUGS (3)
  1. OCALIVA [Suspect]
     Active Substance: OBETICHOLIC ACID
     Indication: PRIMARY BILIARY CHOLANGITIS
  2. OCALIVA [Suspect]
     Active Substance: OBETICHOLIC ACID
     Indication: MULTIPLE SCLEROSIS
     Dosage: 5 MG, QD
     Route: 048
     Dates: start: 20170606
  3. FLUTICASONE. [Concomitant]
     Active Substance: FLUTICASONE
     Dosage: UNK

REACTIONS (8)
  - Arthralgia [Not Recovered/Not Resolved]
  - Pneumonia [Unknown]
  - High density lipoprotein decreased [Unknown]
  - Decreased appetite [Not Recovered/Not Resolved]
  - Weight decreased [Not Recovered/Not Resolved]
  - Oropharyngeal pain [Not Recovered/Not Resolved]
  - Sinusitis [Unknown]
  - Pruritus [Not Recovered/Not Resolved]

NARRATIVE: CASE EVENT DATE: 20170610
